FAERS Safety Report 9259143 (Version 1)
Quarter: 2013Q2

REPORT INFORMATION
  Report Type: Spontaneous
  Country: US (occurrence: US)
  Receive Date: 20130426
  Receipt Date: 20130426
  Transmission Date: 20140414
  Serious: No
  Sender: FDA-Public Use
  Company Number: US-FOUGERA-2012FO001131

PATIENT
  Age: 90 Year
  Sex: Male
  Weight: 58.97 kg

DRUGS (10)
  1. TRIAMCINOLONE ACETONIDE [Suspect]
     Indication: ERYTHEMA
     Route: 061
     Dates: start: 20120417, end: 201205
  2. DIGOXIN [Concomitant]
     Indication: CARDIAC DISORDER
     Route: 048
  3. HUMALOG [Concomitant]
     Indication: DIABETES MELLITUS
     Dosage: DOSE UNIT:13 UNITS
     Route: 058
  4. AZOR /06230801/ [Concomitant]
     Indication: BLOOD PRESSURE
     Route: 048
     Dates: start: 2011
  5. AZOR /06230801/ [Concomitant]
     Indication: CARDIAC DISORDER
     Route: 048
     Dates: start: 2011
  6. DRUGS USED IN DIABETES [Concomitant]
     Indication: DIABETES MELLITUS
     Route: 048
     Dates: start: 2010
  7. DRUGS USED IN DIABETES [Concomitant]
     Indication: DIABETES MELLITUS
     Route: 048
     Dates: start: 2010
  8. WARFARIN [Concomitant]
     Indication: THROMBOSIS PROPHYLAXIS
     Route: 048
  9. PRAVASTATIN [Concomitant]
     Indication: BLOOD CHOLESTEROL
     Route: 048
     Dates: start: 2009
  10. FUROSEMIDE [Concomitant]
     Indication: OEDEMA PERIPHERAL
     Route: 048
     Dates: start: 201112

REACTIONS (1)
  - Skin atrophy [Unknown]
